FAERS Safety Report 10200469 (Version 1)
Quarter: 2014Q2

REPORT INFORMATION
  Report Type: Spontaneous
  Country: US (occurrence: US)
  Receive Date: 20140528
  Receipt Date: 20140528
  Transmission Date: 20141212
  Serious: Yes (Hospitalization)
  Sender: FDA-Public Use
  Company Number: US-BEH-2014042727

PATIENT
  Sex: Male
  Weight: 88 kg

DRUGS (13)
  1. HIZENTRA [Suspect]
     Indication: IMMUNODEFICIENCY COMMON VARIABLE
     Dosage: INFUSE CIA 1-4 SUBCUTANEOUS SITES OVER 1-2 HOURS
     Route: 058
  2. HIZENTRA [Suspect]
     Dosage: INFUSE VIA 1-4 SUBCUTANEOUS SITES OVER 1-2 HOURS
     Route: 058
  3. PENICILLIN [Concomitant]
  4. LISINOPRIL [Concomitant]
  5. ACETAMINOPHEN [Concomitant]
  6. DIPHENHYDRAMINE [Concomitant]
  7. LIDOCAINE [Concomitant]
  8. LIDOCAINE/PRILOCAINE [Concomitant]
  9. EPI PEN [Concomitant]
  10. ALBUTEROL [Concomitant]
  11. ADVAIR [Concomitant]
  12. ATROVENT [Concomitant]
  13. ASPIRIN [Concomitant]

REACTIONS (1)
  - Adverse drug reaction [Unknown]
